FAERS Safety Report 4326164-6 (Version None)
Quarter: 2004Q1

REPORT INFORMATION
  Report Type: 
  Country: None (occurrence: None)
  Receive Date: 20040323
  Receipt Date: 20040309
  Transmission Date: 20041129
  Serious: No
  Sender: FDA-Public Use
  Company Number: 2004S1000035

PATIENT
  Age: 53 Year
  Sex: Male
  Weight: 84 kg

DRUGS (15)
  1. CUBICIN [Suspect]
     Indication: POSTOPERATIVE INFECTION
     Dosage: 325 MG; QD; IV
     Route: 042
     Dates: start: 20040214, end: 20040227
  2. KEFLEX [Concomitant]
  3. CEFAPIME [Concomitant]
  4. VANCOMYCIN [Concomitant]
  5. LEVAQUIN [Concomitant]
  6. COCHICINE [Concomitant]
  7. TOPROL-XL [Concomitant]
  8. ALLOPURINOL [Concomitant]
  9. CENTRIM [Concomitant]
  10. LOTREL [Concomitant]
  11. AMBIEN [Concomitant]
  12. FEVERALL [Concomitant]
  13. MAALOX [Concomitant]
  14. PERCOCET [Concomitant]
  15. TYLENOL (CAPLET) [Concomitant]

REACTIONS (2)
  - CHEST PAIN [None]
  - DYSPEPSIA [None]
